FAERS Safety Report 18123406 (Version 1)
Quarter: 2020Q3

REPORT INFORMATION
  Report Type: Spontaneous
  Country: CN (occurrence: CN)
  Receive Date: 20200807
  Receipt Date: 20200807
  Transmission Date: 20201103
  Serious: Yes (Hospitalization, Other)
  Sender: FDA-Public Use
  Company Number: CN-SA-2020SA201518

PATIENT

DRUGS (3)
  1. DOXORUBICIN HYDROCHLORIDE LIPOSOME [Concomitant]
     Active Substance: DOXORUBICIN HYDROCHLORIDE
     Indication: BREAST CANCER
     Dosage: 52 MG, QD
     Route: 041
     Dates: start: 20200624, end: 20200624
  2. TAXOTERE [Suspect]
     Active Substance: DOCETAXEL
     Indication: BREAST CANCER
     Dosage: 140 MG, QD
     Route: 041
     Dates: start: 20200715, end: 20200715
  3. CYCLOPHOSPHAMIDE. [Concomitant]
     Active Substance: CYCLOPHOSPHAMIDE
     Indication: BREAST CANCER
     Dosage: 0.75 G, QD
     Route: 041
     Dates: start: 20200624, end: 20200624

REACTIONS (3)
  - Myelosuppression [Recovering/Resolving]
  - Drug eruption [Recovering/Resolving]
  - Mouth ulceration [Recovering/Resolving]

NARRATIVE: CASE EVENT DATE: 20200717
